FAERS Safety Report 10075714 (Version 1)
Quarter: 2014Q1

REPORT INFORMATION
  Report Type: Spontaneous
  Country: GB (occurrence: None)
  Receive Date: 20140320
  Receipt Date: 20140320
  Transmission Date: 20141002
  Serious: Yes (Hospitalization, Other)
  Sender: FDA-Public Use
  Company Number: 2208672

PATIENT
  Age: 40 Year
  Sex: Female
  Weight: 63.5 kg

DRUGS (4)
  1. EPIRUBICIN HYDROCHLORIDE [Suspect]
     Indication: BREAST CANCER
     Dosage: NOT OTHERWISE SPECIFIED
     Route: 042
     Dates: start: 201311
  2. FLUOROURACIL [Suspect]
     Indication: BREAST CANCER
     Dosage: NOT OTHERWISE SPECIFIED
     Route: 042
     Dates: start: 201311
  3. PEGFILGRASTIM [Suspect]
     Indication: CHEMOTHERAPY
     Dosage: 3/52
     Route: 058
     Dates: start: 20131120
  4. CYCLOPHOSPHAMIDE [Suspect]
     Indication: BREAST CANCER
     Dosage: NOT OTHERWISE SPECIFIED
     Route: 042
     Dates: start: 201311

REACTIONS (5)
  - Neutropenic sepsis [None]
  - Febrile neutropenia [None]
  - Tremor [None]
  - Malaise [None]
  - Haemoglobin decreased [None]
